FAERS Safety Report 10060597 (Version 1)
Quarter: 2014Q2

REPORT INFORMATION
  Report Type: Spontaneous
  Country: IT (occurrence: IT)
  Receive Date: 20140404
  Receipt Date: 20140404
  Transmission Date: 20141212
  Serious: Yes (Death, Hospitalization)
  Sender: FDA-Public Use
  Company Number: IT-ELI_LILLY_AND_COMPANY-IT201403010709

PATIENT
  Age: 79 Year
  Sex: Male

DRUGS (2)
  1. EFIENT [Suspect]
     Indication: MYOCARDIAL ISCHAEMIA
     Dosage: 10 MG, QD
     Route: 048
     Dates: start: 20130906, end: 20140206
  2. CARDIOASPIRIN [Concomitant]
     Dosage: 100 MG, UNK

REACTIONS (2)
  - Thrombotic thrombocytopenic purpura [Fatal]
  - Haemolysis [Fatal]
